FAERS Safety Report 6646730-2 (Version None)
Quarter: 2010Q1

REPORT INFORMATION
  Report Type: 
  Country: None (occurrence: None)
  Receive Date: 20100323
  Receipt Date: 20100312
  Transmission Date: 20100710
  Serious: Yes (Hospitalization)
  Sender: FDA-Public Use
  Company Number: US-JNJFOC-20100304291

PATIENT
  Sex: Female
  Weight: 127 kg

DRUGS (5)
  1. USTEKINUMAB [Suspect]
     Route: 058
  2. USTEKINUMAB [Suspect]
     Indication: SARCOIDOSIS
     Route: 058
  3. PLACEBO [Suspect]
     Indication: SARCOIDOSIS
     Route: 058
  4. PREDNISONE TAB [Concomitant]
     Indication: SARCOIDOSIS
     Route: 048
  5. NAPROXEN [Concomitant]

REACTIONS (1)
  - CONFUSIONAL STATE [None]
